FAERS Safety Report 15687215 (Version 5)
Quarter: 2019Q3

REPORT INFORMATION
  Report Type: Spontaneous
  Country: JP (occurrence: JP)
  Receive Date: 20181204
  Receipt Date: 20190802
  Transmission Date: 20191004
  Serious: Yes (Death, Other)
  Sender: FDA-Public Use
  Company Number: JP-BRISTOL-MYERS SQUIBB COMPANY-BMS-2018-089339

PATIENT
  Age: 83 Year
  Sex: Male
  Weight: 77 kg

DRUGS (1)
  1. OPDIVO [Suspect]
     Active Substance: NIVOLUMAB
     Indication: METASTATIC RENAL CELL CARCINOMA
     Dosage: 220 MILLIGRAM
     Route: 041
     Dates: start: 20170315, end: 20170329

REACTIONS (5)
  - Hypertension [Unknown]
  - Prescribed underdose [Unknown]
  - Chronic kidney disease [Unknown]
  - Anaemia [Recovering/Resolving]
  - Malignant neoplasm progression [Fatal]

NARRATIVE: CASE EVENT DATE: 20170315
